FAERS Safety Report 25642067 (Version 2)
Quarter: 2025Q4

REPORT INFORMATION
  Report Type: Spontaneous
  Country: US (occurrence: US)
  Receive Date: 20250805
  Receipt Date: 20251016
  Transmission Date: 20260118
  Serious: Yes (Other)
  Sender: TEVA
  Company Number: US-TEVA-VS-3356235

PATIENT
  Age: 79 Year
  Sex: Male

DRUGS (3)
  1. CARVEDILOL [Suspect]
     Active Substance: CARVEDILOL
     Indication: Product used for unknown indication
     Route: 065
     Dates: start: 2025
  2. PREDNISONE [Concomitant]
     Active Substance: PREDNISONE
     Indication: Gout
     Route: 065
  3. VYNDAMAX [Suspect]
     Active Substance: TAFAMIDIS
     Indication: Product used for unknown indication
     Route: 065

REACTIONS (3)
  - Urethral obstruction [Unknown]
  - Blood urine present [Unknown]
  - Sunburn [Unknown]

NARRATIVE: CASE EVENT DATE: 20250101
